FAERS Safety Report 13465762 (Version 1)
Quarter: 2017Q2

REPORT INFORMATION
  Report Type: Spontaneous
  Country: US (occurrence: US)
  Receive Date: 20170420
  Receipt Date: 20170420
  Transmission Date: 20170830
  Serious: Yes (Hospitalization)
  Sender: FDA-Public Use
  Company Number: None

PATIENT
  Age: 68 Year
  Sex: Female

DRUGS (1)
  1. COPAXONE [Suspect]
     Active Substance: GLATIRAMER ACETATE
     Indication: MULTIPLE SCLEROSIS
     Route: 058
     Dates: end: 20170215

REACTIONS (4)
  - Pain in jaw [None]
  - Chest pain [None]
  - Musculoskeletal pain [None]
  - Chest discomfort [None]

NARRATIVE: CASE EVENT DATE: 20170215
